FAERS Safety Report 9484248 (Version 1)
Quarter: 2013Q3

REPORT INFORMATION
  Report Type: Spontaneous
  Country: US (occurrence: US)
  Receive Date: 20130828
  Receipt Date: 20130828
  Transmission Date: 20140515
  Serious: Yes (Hospitalization)
  Sender: FDA-Public Use
  Company Number: US-AMGEN-KDL397746

PATIENT
  Sex: Female

DRUGS (1)
  1. ENBREL [Suspect]
     Indication: PSORIASIS
     Dosage: 50 MG, QWK
     Route: 058

REACTIONS (6)
  - Cardiac arrest [Unknown]
  - Coma [Unknown]
  - Gastric perforation [Unknown]
  - Abdominoplasty [Unknown]
  - Gastric infection [Unknown]
  - Psoriasis [Unknown]
